FAERS Safety Report 14773150 (Version 1)
Quarter: 2018Q2

REPORT INFORMATION
  Report Type: Spontaneous
  Country: US (occurrence: US)
  Receive Date: 20180418
  Receipt Date: 20180418
  Transmission Date: 20180711
  Serious: No
  Sender: FDA-Public Use
  Company Number: US-TEVA-2018-US-867440

PATIENT
  Sex: Male

DRUGS (2)
  1. QVAR [Suspect]
     Active Substance: BECLOMETHASONE DIPROPIONATE
     Indication: CHEST DISCOMFORT
  2. QVAR [Suspect]
     Active Substance: BECLOMETHASONE DIPROPIONATE
     Indication: COUGH
     Dosage: 2 PUFFS TWICE A DAY
     Route: 065
     Dates: start: 20180220

REACTIONS (5)
  - Therapeutic response unexpected [Unknown]
  - Throat tightness [Unknown]
  - Sinus disorder [Unknown]
  - Dysphonia [Unknown]
  - Product use in unapproved indication [Unknown]
